FAERS Safety Report 6357223-4 (Version None)
Quarter: 2009Q3

REPORT INFORMATION
  Report Type: 
  Country: None (occurrence: None)
  Receive Date: 20090911
  Receipt Date: 20090908
  Transmission Date: 20100115
  Serious: Yes (Hospitalization)
  Sender: FDA-Public Use
  Company Number: S06-USA-02303-01

PATIENT
  Age: 36 Year
  Sex: Female
  Weight: 53.5 kg

DRUGS (10)
  1. CELEXA [Suspect]
     Indication: DEPRESSION
     Dosage: 20 DOSAGE FORMS (20 DOSAGE FORMS, 1 IN 1 ONCE), ORAL
     Route: 048
     Dates: start: 20050704, end: 20050704
  2. CELEXA [Suspect]
     Indication: DEPRESSION
     Dosage: 30 MG (30 MG, 1 IN 1 D), ORAL
     Route: 048
     Dates: start: 20020101
  3. XANAX [Suspect]
     Dosage: 15 DOSAGE FORMS (15 DOSAGE FORMS, 1 IN 1 ONCE), ORAL
     Route: 048
     Dates: start: 20050704, end: 20050704
  4. XANAX [Suspect]
     Dosage: ORAL
     Route: 048
  5. REBIF [Suspect]
     Indication: MULTIPLE SCLEROSIS
     Dosage: 44 MCG (44 MCG, 3 IN 1 WK), SUBCUTANEOUS
     Route: 058
     Dates: start: 20020601, end: 20050701
  6. TOPAMAX [Suspect]
     Indication: TREMOR
     Dosage: 200 MG (100 MG, 2 IN 1 D), ORAL
     Route: 048
     Dates: start: 20021101, end: 20050701
  7. TOPAMAX [Suspect]
     Indication: TREMOR
     Dates: start: 20060727
  8. ZYPREXA [Suspect]
  9. BACLOFEN [Concomitant]
  10. WELLBUTRIN (BUPROPION HYDROCHLORIDE) (BUPROPION HYDROCHLORIDE) [Concomitant]

REACTIONS (7)
  - ACUTE PSYCHOSIS [None]
  - HALLUCINATION, AUDITORY [None]
  - LOSS OF CONSCIOUSNESS [None]
  - MAJOR DEPRESSION [None]
  - MULTIPLE DRUG OVERDOSE [None]
  - SOMNOLENCE [None]
  - WEIGHT INCREASED [None]
